FAERS Safety Report 8242339-8 (Version None)
Quarter: 2012Q1

REPORT INFORMATION
  Report Type: 
  Country: None (occurrence: None)
  Receive Date: 20120329
  Receipt Date: 20120321
  Transmission Date: 20120608
  Serious: Yes (Death, Hospitalization)
  Sender: FDA-Public Use
  Company Number: US-ASTELLAS-2012US002551

PATIENT
  Sex: Male

DRUGS (10)
  1. CLARITIN-D [Concomitant]
     Indication: HYPERSENSITIVITY
     Dosage: 16 MG, UID/QD
     Route: 048
     Dates: start: 20120214
  2. MORPHINE SULFATE [Concomitant]
     Indication: PAIN
     Dosage: 15 MG, 1 IN 1 PRN
     Route: 048
     Dates: start: 20110921
  3. DOXYCYCLINE MONOHYDRATE [Concomitant]
     Indication: PRODUCT USED FOR UNKNOWN INDICATION
     Dosage: 200 MG, UID/QD
     Route: 065
     Dates: start: 20120201
  4. MS CONTIN [Concomitant]
     Indication: PAIN
     Dosage: 30 MG, UID/QD
     Route: 065
     Dates: start: 20120214
  5. TARCEVA [Suspect]
     Indication: NON-SMALL CELL LUNG CANCER
     Dosage: 150 MG, UID/QD
     Route: 048
     Dates: start: 20111201
  6. AMBIEN [Concomitant]
     Indication: SLEEP DISORDER
     Dosage: 5 MG, UID/QD
     Route: 048
     Dates: start: 20110921
  7. CLARITIN-D [Concomitant]
     Indication: SINUSITIS
  8. ALBUTEROL [Concomitant]
     Indication: WHEEZING
     Dosage: 40 MG, UID/QD, PRN
     Route: 065
     Dates: start: 20111027
  9. PRILOSEC [Concomitant]
     Dosage: 20 MG, UID/QD
     Route: 048
     Dates: start: 20120201
  10. PRILOSEC [Concomitant]
     Indication: PRODUCT USED FOR UNKNOWN INDICATION
     Dosage: UNK
     Route: 065

REACTIONS (8)
  - RESPIRATORY FAILURE [None]
  - LUNG CANCER METASTATIC [None]
  - MENTAL STATUS CHANGES [None]
  - HYPERKALAEMIA [None]
  - PNEUMONIA [None]
  - RENAL FAILURE ACUTE [None]
  - HEPATITIS FULMINANT [None]
  - SEPTIC SHOCK [None]
